FAERS Safety Report 25689368 (Version 1)
Quarter: 2025Q3

REPORT INFORMATION
  Report Type: Spontaneous
  Country: US (occurrence: US)
  Receive Date: 20250818
  Receipt Date: 20250818
  Transmission Date: 20251021
  Serious: Yes (Death, Life-Threatening, Hospitalization, Disabling)
  Sender: MYLAN
  Company Number: US-MYLANLABS-2025M1068094

PATIENT
  Age: 63 Year
  Sex: Female

DRUGS (32)
  1. PREDNISONE [Suspect]
     Active Substance: PREDNISONE
     Indication: Steroid therapy
     Dosage: 10 MILLIGRAM, QD, THERAPY RE-INITIATED
  2. PREDNISONE [Suspect]
     Active Substance: PREDNISONE
     Dosage: 10 MILLIGRAM, QD, THERAPY RE-INITIATED
     Route: 065
  3. PREDNISONE [Suspect]
     Active Substance: PREDNISONE
     Dosage: 10 MILLIGRAM, QD, THERAPY RE-INITIATED
     Route: 065
  4. PREDNISONE [Suspect]
     Active Substance: PREDNISONE
     Dosage: 10 MILLIGRAM, QD, THERAPY RE-INITIATED
  5. AMPHOTERICIN B [Suspect]
     Active Substance: AMPHOTERICIN B
     Indication: Rhinocerebral mucormycosis
  6. AMPHOTERICIN B [Suspect]
     Active Substance: AMPHOTERICIN B
     Indication: Mucormycosis
  7. AMPHOTERICIN B [Suspect]
     Active Substance: AMPHOTERICIN B
     Route: 065
  8. AMPHOTERICIN B [Suspect]
     Active Substance: AMPHOTERICIN B
     Route: 065
  9. AMPHOTERICIN B [Suspect]
     Active Substance: AMPHOTERICIN B
  10. AMPHOTERICIN B [Suspect]
     Active Substance: AMPHOTERICIN B
  11. AMPHOTERICIN B [Suspect]
     Active Substance: AMPHOTERICIN B
     Route: 056
  12. AMPHOTERICIN B [Suspect]
     Active Substance: AMPHOTERICIN B
     Route: 056
  13. POSACONAZOLE [Suspect]
     Active Substance: POSACONAZOLE
     Indication: Rhinocerebral mucormycosis
  14. POSACONAZOLE [Suspect]
     Active Substance: POSACONAZOLE
     Indication: Mucormycosis
     Route: 065
  15. POSACONAZOLE [Suspect]
     Active Substance: POSACONAZOLE
     Route: 065
  16. POSACONAZOLE [Suspect]
     Active Substance: POSACONAZOLE
  17. PIRTOBRUTINIB [Suspect]
     Active Substance: PIRTOBRUTINIB
     Indication: Mantle cell lymphoma recurrent
  18. PIRTOBRUTINIB [Suspect]
     Active Substance: PIRTOBRUTINIB
     Route: 065
  19. PIRTOBRUTINIB [Suspect]
     Active Substance: PIRTOBRUTINIB
     Route: 065
  20. PIRTOBRUTINIB [Suspect]
     Active Substance: PIRTOBRUTINIB
  21. ERTAPENEM [Suspect]
     Active Substance: ERTAPENEM
     Indication: Klebsiella infection
  22. ERTAPENEM [Suspect]
     Active Substance: ERTAPENEM
     Route: 065
  23. ERTAPENEM [Suspect]
     Active Substance: ERTAPENEM
     Route: 065
  24. ERTAPENEM [Suspect]
     Active Substance: ERTAPENEM
  25. SULFAMETHOXAZOLE\TRIMETHOPRIM [Suspect]
     Active Substance: SULFAMETHOXAZOLE\TRIMETHOPRIM
     Indication: Pneumocystis jirovecii pneumonia
  26. SULFAMETHOXAZOLE\TRIMETHOPRIM [Suspect]
     Active Substance: SULFAMETHOXAZOLE\TRIMETHOPRIM
     Route: 065
  27. SULFAMETHOXAZOLE\TRIMETHOPRIM [Suspect]
     Active Substance: SULFAMETHOXAZOLE\TRIMETHOPRIM
     Route: 065
  28. SULFAMETHOXAZOLE\TRIMETHOPRIM [Suspect]
     Active Substance: SULFAMETHOXAZOLE\TRIMETHOPRIM
  29. REMDESIVIR [Suspect]
     Active Substance: REMDESIVIR
     Indication: COVID-19 pneumonia
  30. REMDESIVIR [Suspect]
     Active Substance: REMDESIVIR
     Route: 065
  31. REMDESIVIR [Suspect]
     Active Substance: REMDESIVIR
     Route: 065
  32. REMDESIVIR [Suspect]
     Active Substance: REMDESIVIR

REACTIONS (9)
  - Rhinocerebral mucormycosis [Fatal]
  - Mucormycosis [Fatal]
  - Pneumocystis jirovecii pneumonia [Fatal]
  - Drug ineffective [Fatal]
  - Respiratory arrest [Fatal]
  - Acute respiratory distress syndrome [Fatal]
  - Septic shock [Unknown]
  - Blindness unilateral [Unknown]
  - Eyelid ptosis [Unknown]
